FAERS Safety Report 13889751 (Version 1)
Quarter: 2017Q3

REPORT INFORMATION
  Report Type: Spontaneous
  Country: US (occurrence: US)
  Receive Date: 20170822
  Receipt Date: 20170822
  Transmission Date: 20171127
  Serious: No
  Sender: FDA-Public Use
  Company Number: US-ROCHE-1096626

PATIENT
  Sex: Female

DRUGS (2)
  1. PRILOSEC [Interacting]
     Active Substance: OMEPRAZOLE MAGNESIUM
     Indication: PRODUCT USED FOR UNKNOWN INDICATION
  2. ACTEMRA [Suspect]
     Active Substance: TOCILIZUMAB
     Indication: RHEUMATOID ARTHRITIS
     Route: 042

REACTIONS (3)
  - Gastrooesophageal reflux disease [Unknown]
  - Hepatic enzyme increased [Unknown]
  - Dyspepsia [Unknown]
